FAERS Safety Report 24379981 (Version 1)
Quarter: 2024Q3

REPORT INFORMATION
  Report Type: Report from Study
  Country: US (occurrence: US)
  Receive Date: 20240930
  Receipt Date: 20240930
  Transmission Date: 20241016
  Serious: Yes (Hospitalization, Other)
  Sender: NOVARTIS
  Company Number: US-002147023-NVSC2024US165975

PATIENT
  Age: 91 Year
  Sex: Female
  Weight: 75.5 kg

DRUGS (28)
  1. PIQRAY [Suspect]
     Active Substance: ALPELISIB
     Indication: Breast cancer
     Dosage: 300 MG/KG, QD
     Route: 048
     Dates: start: 20240614
  2. PIQRAY [Suspect]
     Active Substance: ALPELISIB
     Dosage: 300 MG, QD
     Route: 048
     Dates: start: 20240618, end: 20240628
  3. PIQRAY [Suspect]
     Active Substance: ALPELISIB
     Dosage: 2 DOSAGE FORM (250 MG), QD
     Route: 048
     Dates: start: 20240630, end: 20240812
  4. ELIQUIS [Concomitant]
     Active Substance: APIXABAN
     Indication: Atrial fibrillation
     Dosage: 1 DOSAGE FORM (2.5 MG), BID
     Route: 048
     Dates: start: 20240626
  5. MIRALAX [Concomitant]
     Active Substance: POLYETHYLENE GLYCOL 3350
     Indication: Constipation
     Dosage: 17 G, PRN, WITH 8 OZ BEVERAGE
     Route: 048
     Dates: start: 20240613
  6. MIRALAX [Concomitant]
     Active Substance: POLYETHYLENE GLYCOL 3350
     Indication: Gastrooesophageal reflux disease
  7. ZYRTEC [Concomitant]
     Active Substance: CETIRIZINE HYDROCHLORIDE
     Indication: Product used for unknown indication
     Dosage: 1 DOSAGE FORM, QD
     Route: 048
     Dates: start: 20240617
  8. ZOLOFT [Concomitant]
     Active Substance: SERTRALINE HYDROCHLORIDE
     Indication: Depression
     Dosage: 1 TABLET (50 MG TOTAL), QD
     Route: 048
     Dates: start: 20240626, end: 20240924
  9. TOPROL XL [Concomitant]
     Active Substance: METOPROLOL SUCCINATE
     Indication: Atrial fibrillation
     Dosage: 1 DOSAGE FORM (25 MG), QD
     Route: 048
     Dates: start: 20240626
  10. PANTOPRAZOLE [Concomitant]
     Active Substance: PANTOPRAZOLE
     Indication: Gastrooesophageal reflux disease
     Dosage: 1 DOSAGE FORM, QD
     Route: 048
     Dates: start: 20240626, end: 20240924
  11. DULCOLAX [Concomitant]
     Indication: Constipation
     Dosage: 11 SUPPOSITORY (10 MG TOTAL) RECTALLY DAILY AS NEEDED
     Route: 054
  12. DULCOLAX [Concomitant]
     Indication: Gastrooesophageal reflux disease
  13. ROBINUL [Concomitant]
     Active Substance: GLYCOPYRROLATE
     Indication: Respiratory disorder
     Dosage: 1 TABLET (1 MG TOTAL) BY MOUTH EVERY 4 (FOUR) HOURS AS NEEDED
     Route: 048
  14. ROBINUL [Concomitant]
     Active Substance: GLYCOPYRROLATE
     Indication: Gastrooesophageal reflux disease
  15. HALDOL [Concomitant]
     Active Substance: HALOPERIDOL
     Indication: Delirium
     Dosage: 2.5 - 5MG BY MOUTH EVERY 1 HOUR PRN, PRN
     Route: 048
  16. HALDOL [Concomitant]
     Active Substance: HALOPERIDOL
     Indication: Vomiting
  17. HALDOL [Concomitant]
     Active Substance: HALOPERIDOL
     Indication: Depression
  18. LIDOCAINE [Concomitant]
     Active Substance: LIDOCAINE
     Indication: Product used for unknown indication
     Dosage: 1 PATCH ONTO THE SKIN DAILY. QD
     Route: 062
  19. CANNABIDIOL [Concomitant]
     Active Substance: CANNABIDIOL
     Indication: Pain
     Dosage: 1 DOSE BY MOUTH DAILY AS NEEDED, PRN, 60:1, 1 DOSE=1 GUMMY
     Route: 048
  20. ATIVAN [Concomitant]
     Active Substance: LORAZEPAM
     Indication: Anxiety
     Dosage: 1-4 TABLETS (0.5-2 MG TOTAL) BY MOUTH EVERY HOUR AS NEEDED
     Route: 048
  21. ATIVAN [Concomitant]
     Active Substance: LORAZEPAM
     Indication: Dyspnoea
  22. ROXANOL [Concomitant]
     Active Substance: MORPHINE SULFATE
     Indication: Pain
     Dosage: 0.25-1 MLS (5-20 MG TOTAL)
     Route: 048
  23. ROXANOL [Concomitant]
     Active Substance: MORPHINE SULFATE
     Indication: Dyspnoea
  24. ROXANOL [Concomitant]
     Active Substance: MORPHINE SULFATE
     Indication: Gastrooesophageal reflux disease
  25. ROXANOL [Concomitant]
     Active Substance: MORPHINE SULFATE
     Indication: Osteoarthritis
  26. PHENOBARBITAL [Concomitant]
     Active Substance: PHENOBARBITAL
     Indication: Agitation
     Dosage: 0.5 MLS (50 MG TOTAL) BY MOUTH EVERY 3 (THREE) HOURS AS NEEDED
     Route: 048
  27. DESYREL [Concomitant]
     Active Substance: TRAZODONE HYDROCHLORIDE
     Indication: Insomnia
     Dosage: 50-100 MG BY MOUTH NIGHTLY AS NEEDED
     Route: 048
  28. DESYREL [Concomitant]
     Active Substance: TRAZODONE HYDROCHLORIDE
     Indication: Depression

REACTIONS (7)
  - Blood glucose abnormal [Recovered/Resolved]
  - Drug intolerance [Recovered/Resolved]
  - Hyperglycaemia [Unknown]
  - Dry mouth [Unknown]
  - Hypokalaemia [Unknown]
  - Lactic acidosis [Unknown]
  - Diabetic ketoacidosis [Unknown]

NARRATIVE: CASE EVENT DATE: 20240628
